FAERS Safety Report 5320265-1 (Version None)
Quarter: 2007Q2

REPORT INFORMATION
  Report Type: 
  Country: None (occurrence: None)
  Receive Date: 20070503
  Receipt Date: 20070503
  Transmission Date: 20071010
  Serious: Yes (Hospitalization)
  Sender: FDA-Public Use
  Company Number: None

PATIENT
  Age: 60 Year
  Sex: Male
  Weight: 93.0781 kg

DRUGS (7)
  1. KETOCONAZOLE [Suspect]
     Indication: PROSTATE CANCER
     Dosage: 400MG BID PO
     Route: 048
     Dates: start: 20070425
  2. DOCETAXEL [Suspect]
     Indication: PROSTATE CANCER
     Dosage: 55MG/M2 IV
     Route: 042
     Dates: start: 20070425
  3. LISINOPRIL [Concomitant]
  4. METHOCARBAMOL [Concomitant]
  5. HYDROCORTISONE [Concomitant]
  6. DEXAMETHASONE 0.5MG TAB [Concomitant]
  7. SIMVASTATIN [Concomitant]

REACTIONS (10)
  - ASTHENIA [None]
  - FEBRILE NEUTROPENIA [None]
  - HEART RATE INCREASED [None]
  - LEUKOPENIA [None]
  - LIVER FUNCTION TEST ABNORMAL [None]
  - MEMORY IMPAIRMENT [None]
  - NAUSEA [None]
  - ORAL INTAKE REDUCED [None]
  - TEARFULNESS [None]
  - VOMITING [None]
